FAERS Safety Report 25847611 (Version 1)
Quarter: 2025Q3

REPORT INFORMATION
  Report Type: Spontaneous
  Country: EU (occurrence: EU)
  Receive Date: 20250925
  Receipt Date: 20250925
  Transmission Date: 20251020
  Serious: Yes (Hospitalization, Other)
  Sender: GILEAD
  Company Number: EU-GILEAD-2025-0729024

PATIENT
  Age: 52 Year
  Sex: Male

DRUGS (1)
  1. BIKTARVY [Suspect]
     Active Substance: BICTEGRAVIR SODIUM\EMTRICITABINE\TENOFOVIR ALAFENAMIDE FUMARATE
     Indication: Product used for unknown indication
     Route: 065

REACTIONS (8)
  - Purulent pericarditis [Unknown]
  - Pericardial effusion [Unknown]
  - Pneumonia [Unknown]
  - Infectious pleural effusion [Unknown]
  - Haemophagocytic lymphohistiocytosis [Unknown]
  - Lymphoma [Unknown]
  - Human herpes virus 8 test positive [Unknown]
  - Pleural effusion [Unknown]

NARRATIVE: CASE EVENT DATE: 20240217
